FAERS Safety Report 4912127-6 (Version None)
Quarter: 2006Q1

REPORT INFORMATION
  Report Type: 
  Country: None (occurrence: None)
  Receive Date: 20060215
  Receipt Date: 20050715
  Transmission Date: 20060701
  Serious: No
  Sender: FDA-Public Use
  Company Number: US-GLAXOSMITHKLINE-A0566455A

PATIENT
  Age: 34 Year
  Sex: Female

DRUGS (2)
  1. VALTREX [Suspect]
     Dosage: 500MG TWICE PER DAY
     Route: 048
     Dates: start: 20050711
  2. NO CONCURRENT MEDICATION [Concomitant]

REACTIONS (4)
  - MENSTRUAL DISORDER [None]
  - MICTURITION DISORDER [None]
  - PAIN IN EXTREMITY [None]
  - THIRST [None]
